FAERS Safety Report 24311510 (Version 1)
Quarter: 2024Q3

REPORT INFORMATION
  Report Type: Spontaneous
  Country: KR (occurrence: KR)
  Receive Date: 20240912
  Receipt Date: 20240912
  Transmission Date: 20241017
  Serious: Yes (Disabling)
  Sender: ROCHE
  Company Number: KR-CHEPLA-2024011358

PATIENT
  Age: 72 Year
  Sex: Male

DRUGS (2)
  1. GANCICLOVIR [Suspect]
     Active Substance: GANCICLOVIR
     Indication: Cytomegalovirus chorioretinitis
     Dosage: INTRAVITREAL/THREE INJECTIONS OF GANCICLOVIR WERE ADMINISTERED OVER 2 WEEKS
     Route: 031
  2. VALGANCICLOVIR [Suspect]
     Active Substance: VALGANCICLOVIR
     Indication: Cytomegalovirus chorioretinitis
     Route: 065

REACTIONS (4)
  - Blindness [Unknown]
  - Iris neovascularisation [Unknown]
  - Off label use [Unknown]
  - Off label use [Unknown]
